FAERS Safety Report 7173330 (Version 2)
Quarter: 2020Q3

REPORT INFORMATION
  Report Type: Report from Study
  Country: US (occurrence: CA)
  Receive Date: 20091111
  Receipt Date: 20120123
  Transmission Date: 20201105
  Serious: Yes (Hospitalization, Other)
  Sender: FDA-Public Use
  Company Number: CA-JNJFOC-20060604193

PATIENT
  Age: 54 Year
  Sex: Male
  Weight: 71.6 kg

DRUGS (11)
  1. TYLENOL [Concomitant]
     Active Substance: ACETAMINOPHEN
     Route: 048
     Dates: start: 200502
  2. CALCIUM [Concomitant]
     Active Substance: CALCIUM
     Route: 048
     Dates: start: 200510
  3. CIPRO [Concomitant]
     Active Substance: CIPROFLOXACIN HYDROCHLORIDE
     Route: 048
     Dates: start: 20060613
  4. BIAXIN [Concomitant]
     Active Substance: CLARITHROMYCIN
     Route: 048
     Dates: start: 20050511, end: 20050515
  5. GOLIMUMAB [Suspect]
     Active Substance: GOLIMUMAB
     Dosage: WK 8: STUDY AGENT WAS GIVEN AS 2 SQ INJECTIONS, 1 CONTAINING 05. ML AND 1 CONTAINING 1.0 ML
     Route: 058
     Dates: start: 20060612
  6. GOLIMUMAB [Suspect]
     Active Substance: GOLIMUMAB
     Indication: PSORIATIC ARTHROPATHY
     Dosage: WK 0: STUDY AGENT WAS GIVEN AS 2 SQ INJECTIONS, 1 CONTAINING 05. ML AND 1 CONTAINING 1.0 ML
     Route: 058
     Dates: start: 20060410
  7. GOLIMUMAB [Suspect]
     Active Substance: GOLIMUMAB
     Dosage: WK 8: STUDY AGENT WAS GIVEN AS 2 SQ INJECTIONS, 1 CONTAINING 05. ML AND 1 CONTAINING 1.0 ML
     Route: 058
     Dates: start: 20060612
  8. GOLIMUMAB [Suspect]
     Active Substance: GOLIMUMAB
     Dosage: WK 4: STUDY AGENT WAS GIVEN AS 2 SQ INJECTIONS, 1 CONTAINING 05. ML AND 1 CONTAINING 1.0 ML
     Route: 058
     Dates: start: 20060515
  9. GOLIMUMAB [Suspect]
     Active Substance: GOLIMUMAB
     Dosage: WK 4: STUDY AGENT WAS GIVEN AS 2 SQ INJECTIONS, 1 CONTAINING 05. ML AND 1 CONTAINING 1.0 ML
     Route: 058
     Dates: start: 20060515
  10. HALIBUT OIL [Concomitant]
     Route: 048
     Dates: start: 20051001
  11. GOLIMUMAB [Suspect]
     Active Substance: GOLIMUMAB
     Dosage: WK 0: STUDY AGENT WAS GIVEN AS 2 SQ INJECTIONS, 1 CONTAINING 05. ML AND 1 CONTAINING 1.0 ML
     Route: 058
     Dates: start: 20060410

REACTIONS (1)
  - Prostate cancer [Recovered/Resolved]

NARRATIVE: CASE EVENT DATE: 20060619
